FAERS Safety Report 6377899-5 (Version None)
Quarter: 2009Q3

REPORT INFORMATION
  Report Type: 
  Country: None (occurrence: None)
  Receive Date: 20090925
  Receipt Date: 20090916
  Transmission Date: 20100115
  Serious: Yes (Hospitalization)
  Sender: FDA-Public Use
  Company Number: PHHY2009FR27712

PATIENT
  Sex: Male
  Weight: 60 kg

DRUGS (2)
  1. LAMISIL [Suspect]
     Indication: INTERVERTEBRAL DISCITIS
     Dosage: 1000 MG/DAY
     Route: 048
     Dates: start: 20090315
  2. VFEND [Concomitant]
     Dosage: 400 MG, BID
     Route: 048
     Dates: start: 19990101

REACTIONS (4)
  - CONDITION AGGRAVATED [None]
  - DRUG INEFFECTIVE [None]
  - INTERVERTEBRAL DISCITIS [None]
  - SCEDOSPORIUM INFECTION [None]
